FAERS Safety Report 12352672 (Version 2)
Quarter: 2016Q2

REPORT INFORMATION
  Report Type: Report from Study
  Country: US (occurrence: US)
  Receive Date: 20160510
  Receipt Date: 20160510
  Transmission Date: 20160815
  Serious: Yes (Life-Threatening, Hospitalization)
  Sender: FDA-Public Use
  Company Number: US-009507513-1605USA003595

PATIENT
  Age: 58 Year
  Sex: Female

DRUGS (3)
  1. NOLVADEX [Concomitant]
     Active Substance: TAMOXIFEN CITRATE
     Indication: BREAST CANCER METASTATIC
     Dosage: 1 CAPSULE, QD
     Route: 048
     Dates: start: 20151020, end: 20160112
  2. ZOLINZA [Concomitant]
     Active Substance: VORINOSTAT
     Indication: BREAST CANCER METASTATIC
     Dosage: TOTAL DAILY DOSE: 4 CAPSULES, (FREQUENCY: 5 DAYS ON, 2 DAYS OFF)
     Route: 048
     Dates: start: 20151020, end: 20160112
  3. PEMBROLIZUMAB. [Suspect]
     Active Substance: PEMBROLIZUMAB
     Indication: BREAST CANCER METASTATIC
     Dosage: 200 MG, Q3W
     Route: 042
     Dates: start: 20151110, end: 20160112

REACTIONS (1)
  - Enterocolitis haemorrhagic [Recovered/Resolved with Sequelae]

NARRATIVE: CASE EVENT DATE: 20160426
